FAERS Safety Report 16227355 (Version 1)
Quarter: 2019Q2

REPORT INFORMATION
  Report Type: Spontaneous
  Country: EG (occurrence: EG)
  Receive Date: 20190423
  Receipt Date: 20190423
  Transmission Date: 20190711
  Serious: Yes (Hospitalization, Other)
  Sender: FDA-Public Use
  Company Number: EG-ELI_LILLY_AND_COMPANY-EG201808004117

PATIENT
  Sex: Female

DRUGS (8)
  1. HUMALOG [Suspect]
     Active Substance: INSULIN LISPRO
     Indication: TYPE 2 DIABETES MELLITUS
     Dosage: 15 IU, EACH MORNING
     Route: 058
     Dates: start: 201805
  2. HUMALOG [Suspect]
     Active Substance: INSULIN LISPRO
     Indication: TYPE 2 DIABETES MELLITUS
     Dosage: 15 IU, AT BREAKFAST
     Route: 058
     Dates: start: 201805
  3. FOLIC ACID. [Concomitant]
     Active Substance: FOLIC ACID
     Indication: PRODUCT USED FOR UNKNOWN INDICATION
  4. HUMALOG [Suspect]
     Active Substance: INSULIN LISPRO
     Dosage: 5 IU, EACH EVENING (DINNER)
     Route: 058
     Dates: start: 201805
  5. HUMALOG [Suspect]
     Active Substance: INSULIN LISPRO
     Dosage: 10 IU, AT LUNCH
     Route: 058
     Dates: start: 201805
  6. HUMALOG [Suspect]
     Active Substance: INSULIN LISPRO
     Dosage: 5 IU, AT DINNER
     Route: 058
     Dates: start: 201805
  7. HUMALOG [Suspect]
     Active Substance: INSULIN LISPRO
     Dosage: 10 IU, DAILY (LUNCH)
     Route: 058
     Dates: start: 201805
  8. LANTUS [Concomitant]
     Active Substance: INSULIN GLARGINE
     Indication: TYPE 2 DIABETES MELLITUS
     Dosage: 15 IU, DAILY
     Route: 058
     Dates: start: 2017

REACTIONS (12)
  - Urine ketone body present [Recovered/Resolved]
  - Blood glucose increased [Recovered/Resolved]
  - Stress [Recovered/Resolved]
  - Pain in extremity [Recovered/Resolved]
  - Malaise [Recovered/Resolved]
  - Blood glucose increased [Recovered/Resolved]
  - Impaired healing [Unknown]
  - Nasopharyngitis [Recovered/Resolved]
  - Suppressed lactation [Unknown]
  - Product dose omission [Unknown]
  - Decreased appetite [Recovered/Resolved]
  - Maternal exposure during pregnancy [Recovered/Resolved]

NARRATIVE: CASE EVENT DATE: 201811
